FAERS Safety Report 21889940 (Version 1)
Quarter: 2023Q1

REPORT INFORMATION
  Report Type: Spontaneous
  Country: US (occurrence: US)
  Receive Date: 20230120
  Receipt Date: 20230120
  Transmission Date: 20230418
  Serious: Yes (Hospitalization, Other)
  Sender: FDA-Public Use
  Company Number: US-002147023-NVSC2023US010034

PATIENT
  Weight: 3.13 kg

DRUGS (3)
  1. METOPROLOL [Suspect]
     Active Substance: METOPROLOL
     Indication: Foetal exposure during pregnancy
     Dosage: MATERNAL EXPOSURE DURING PREGNANCY:UNK
     Route: 064
  2. BETAMETHASONE [Suspect]
     Active Substance: BETAMETHASONE
     Indication: Foetal exposure during pregnancy
     Dosage: MATERNAL EXPOSURE DURING PREGNANCY:UNK
     Route: 064
  3. DILTIAZEM [Suspect]
     Active Substance: DILTIAZEM
     Indication: Foetal exposure during pregnancy
     Dosage: MATERNAL EXPOSURE DURING PREGNANCY:UNK
     Route: 064

REACTIONS (3)
  - Hydrops foetalis [Unknown]
  - Premature baby [Unknown]
  - Foetal exposure during pregnancy [Unknown]
